FAERS Safety Report 21540219 (Version 1)
Quarter: 2022Q4

REPORT INFORMATION
  Report Type: Spontaneous
  Country: JP (occurrence: JP)
  Receive Date: 20221102
  Receipt Date: 20221102
  Transmission Date: 20230112
  Serious: Yes (Death, Hospitalization, Other)
  Sender: FDA-Public Use
  Company Number: JP-CHUGAI-2022020330

PATIENT
  Age: 83 Year
  Sex: Male
  Weight: 70 kg

DRUGS (5)
  1. TECENTRIQ [Suspect]
     Active Substance: ATEZOLIZUMAB
     Indication: Hepatocellular carcinoma
     Dosage: 1200 MILLIGRAM, ONCE/3WEEKS
     Route: 041
     Dates: start: 20210125, end: 20210602
  2. TECENTRIQ [Suspect]
     Active Substance: ATEZOLIZUMAB
     Dosage: UNK UNK, ONCE/3WEEKS
     Route: 041
     Dates: start: 20210702
  3. AVASTIN [Suspect]
     Active Substance: BEVACIZUMAB
     Indication: Hepatocellular carcinoma
     Dosage: 1100 MILLIGRAM, ONCE/3WEEKS
     Route: 041
     Dates: start: 20210125, end: 20210602
  4. AVASTIN [Suspect]
     Active Substance: BEVACIZUMAB
     Dosage: UNK MILLIGRAM
     Route: 041
     Dates: start: 20210702
  5. AMINO ACIDS, SOURCE UNSPECIFIED [Concomitant]
     Active Substance: AMINO ACIDS, SOURCE UNSPECIFIED
     Dosage: UNK
     Route: 048
     Dates: start: 20100810, end: 20210309

REACTIONS (3)
  - Adrenal insufficiency [Recovered/Resolved]
  - Hypertension [Recovered/Resolved]
  - Disease progression [Fatal]

NARRATIVE: CASE EVENT DATE: 20210331
